FAERS Safety Report 12463850 (Version 1)
Quarter: 2016Q2

REPORT INFORMATION
  Report Type: Spontaneous
  Country: US (occurrence: US)
  Receive Date: 20160614
  Receipt Date: 20160614
  Transmission Date: 20160815
  Serious: Yes (Hospitalization, Other)
  Sender: FDA-Public Use
  Company Number: US-ACTAVIS-2016-12157

PATIENT
  Age: 55 Year
  Sex: Male

DRUGS (1)
  1. VANCOMYCIN HCL (WATSON LABORATORIES) [Suspect]
     Active Substance: VANCOMYCIN
     Indication: PNEUMONIA
     Dosage: UNK
     Route: 065

REACTIONS (1)
  - Thrombocytopenia [Recovered/Resolved]
